FAERS Safety Report 11966176 (Version 1)
Quarter: 2016Q1

REPORT INFORMATION
  Report Type: Spontaneous
  Country: US (occurrence: US)
  Receive Date: 20160127
  Receipt Date: 20160127
  Transmission Date: 20160526
  Serious: No
  Sender: FDA-Public Use
  Company Number: US-PFIZER INC-2016040128

PATIENT
  Sex: Female

DRUGS (1)
  1. LYRICA [Suspect]
     Active Substance: PREGABALIN
     Dosage: 50 MG CAPSULE ONE AT BEDTIME
     Dates: start: 20160121

REACTIONS (4)
  - Eating disorder [Unknown]
  - Sinus headache [Recovered/Resolved]
  - Headache [Recovered/Resolved]
  - Diarrhoea [Unknown]
